FAERS Safety Report 13762955 (Version 1)
Quarter: 2017Q3

REPORT INFORMATION
  Report Type: Spontaneous
  Country: US (occurrence: US)
  Receive Date: 20170718
  Receipt Date: 20170718
  Transmission Date: 20171127
  Serious: No
  Sender: FDA-Public Use
  Company Number: US-FRESENIUS KABI-FK201706090

PATIENT
  Age: 40 Year
  Sex: Female
  Weight: 80.6 kg

DRUGS (2)
  1. DIPRIVAN [Suspect]
     Active Substance: PROPOFOL
     Route: 065
     Dates: start: 20170714, end: 20170714
  2. DIPRIVAN [Suspect]
     Active Substance: PROPOFOL
     Indication: SEDATION
     Route: 065
     Dates: start: 20170714, end: 20170714

REACTIONS (2)
  - Therapeutic product ineffective [Recovered/Resolved]
  - Drug effect decreased [Unknown]

NARRATIVE: CASE EVENT DATE: 20170714
